FAERS Safety Report 15894064 (Version 1)
Quarter: 2019Q1

REPORT INFORMATION
  Report Type: Spontaneous
  Country: FR (occurrence: FR)
  Receive Date: 20190131
  Receipt Date: 20190131
  Transmission Date: 20190417
  Serious: Yes (Hospitalization, Other)
  Sender: FDA-Public Use
  Company Number: FR-BRISTOL-MYERS SQUIBB COMPANY-BMS-2019-006835

PATIENT
  Age: 77 Year
  Sex: Male

DRUGS (1)
  1. COUMADINE [Suspect]
     Active Substance: WARFARIN SODIUM
     Indication: ATRIAL FIBRILLATION
     Route: 048
     Dates: start: 20180529

REACTIONS (5)
  - Haemorrhagic anaemia [Recovered/Resolved]
  - Melaena [Recovered/Resolved]
  - Decreased appetite [Recovered/Resolved]
  - Epistaxis [Recovered/Resolved]
  - International normalised ratio increased [Recovered/Resolved]

NARRATIVE: CASE EVENT DATE: 20180809
